FAERS Safety Report 8813659 (Version 1)
Quarter: 2012Q4

REPORT INFORMATION
  Report Type: 
  Country: US (occurrence: US)
  Receive Date: 20120927
  Receipt Date: 20120927
  Transmission Date: 20130627
  Serious: No
  Sender: FDA-Public Use
  Company Number: US-009507513-1209USA007258

PATIENT
  Age: 81 Year
  Sex: Male

DRUGS (6)
  1. COZAAR [Suspect]
     Indication: BLOOD PRESSURE
     Dosage: 100 mg, qd
     Route: 048
  2. TIAZAC [Concomitant]
  3. PLAVIX [Concomitant]
  4. ZOCOR [Concomitant]
     Dosage: UNK
     Route: 048
  5. TRENTAL [Concomitant]
  6. NEXIUM [Concomitant]

REACTIONS (2)
  - Blood pressure inadequately controlled [Not Recovered/Not Resolved]
  - Therapeutic response decreased [Unknown]
